FAERS Safety Report 18955057 (Version 4)
Quarter: 2021Q4

REPORT INFORMATION
  Report Type: Spontaneous
  Country: GB (occurrence: GB)
  Receive Date: 20210301
  Receipt Date: 20211222
  Transmission Date: 20220303
  Serious: Yes (Hospitalization, Disabling, Other)
  Sender: FDA-Public Use
  Company Number: GB-002147023-PHHY2019GB207337

PATIENT
  Age: 8 Year
  Sex: Female
  Weight: 23.35 kg

DRUGS (36)
  1. EVEROLIMUS [Suspect]
     Active Substance: EVEROLIMUS
     Indication: Brain stem glioma
     Dosage: 5 MG, QD (MONDAYTO SATURDAY)
     Route: 048
     Dates: start: 20190717
  2. EVEROLIMUS [Suspect]
     Active Substance: EVEROLIMUS
     Dosage: 2.5 MG, QW (SUNDAY)
     Route: 048
     Dates: start: 201907
  3. EVEROLIMUS [Suspect]
     Active Substance: EVEROLIMUS
     Dosage: 2.5 MG TUESDAY/ THURSDAY/SATURDAY/ SUNDAY
     Route: 048
     Dates: end: 20200207
  4. EVEROLIMUS [Suspect]
     Active Substance: EVEROLIMUS
     Dosage: TUESDAY/THURSDAY/SATURDAY/SUNDAY
     Route: 048
     Dates: start: 20200212
  5. EVEROLIMUS [Suspect]
     Active Substance: EVEROLIMUS
     Dosage: 2.5 MG, 1X/DAY TU/TH/SAT/SUN
     Route: 048
     Dates: start: 20210207
  6. EVEROLIMUS [Suspect]
     Active Substance: EVEROLIMUS
     Dosage: 5 MILLIGRAM, DAILY, 5MG MONDAY/WEDNESDAY/FRIDAY
     Route: 048
  7. EVEROLIMUS [Suspect]
     Active Substance: EVEROLIMUS
     Dosage: 5 MG ON MONDAY, WEDNESDAY AND FRIDAY AND 2.5 MG ON TUESDAY, THURSDAY, SATURDAY AND SUNDAY ()
     Route: 048
     Dates: start: 20191001
  8. VANDETANIB [Suspect]
     Active Substance: VANDETANIB
     Indication: Brain stem glioma
     Dosage: 100 MG, QOD (65 MG/M2)
     Route: 048
     Dates: start: 20191009, end: 20191014
  9. VANDETANIB [Suspect]
     Active Substance: VANDETANIB
     Indication: Brain stem glioma
     Dosage: 100 MG, QOD
     Route: 048
     Dates: start: 20200212, end: 20200302
  10. VANDETANIB [Suspect]
     Active Substance: VANDETANIB
     Dosage: 100 MG, QOD (65 MG/M2)
     Route: 048
     Dates: start: 20191018, end: 20200207
  11. VANDETANIB [Suspect]
     Active Substance: VANDETANIB
     Dosage: 65 MG/M2, QD
     Route: 048
     Dates: start: 20200316, end: 20200420
  12. DEXAMETHASONE [Suspect]
     Active Substance: DEXAMETHASONE
     Indication: Product used for unknown indication
     Dosage: 4.6 MILLIGRAM, UNK
     Route: 048
     Dates: start: 20200207, end: 20200221
  13. DEXAMETHASONE [Suspect]
     Active Substance: DEXAMETHASONE
     Dosage: 3.5 MILLIGRAM, BID
     Route: 048
     Dates: start: 20200210
  14. DEXAMETHASONE [Suspect]
     Active Substance: DEXAMETHASONE
     Dosage: 3.5 MG, QD
     Route: 048
     Dates: start: 20200212
  15. DEXAMETHASONE [Suspect]
     Active Substance: DEXAMETHASONE
     Dosage: 1.6 MILLIGRAM, DAILY
     Route: 048
     Dates: start: 20200215, end: 20200221
  16. DEXAMETHASONE [Suspect]
     Active Substance: DEXAMETHASONE
     Dosage: 1.6 MG
     Route: 048
     Dates: start: 20210215, end: 20210221
  17. DEXAMETHASONE [Suspect]
     Active Substance: DEXAMETHASONE
     Dosage: 3.5 MG
     Route: 048
     Dates: start: 20210210
  18. RANITIDINE [Suspect]
     Active Substance: RANITIDINE
     Indication: Gastrooesophageal reflux disease
     Dosage: UNK, BID
     Route: 048
  19. RANITIDINE [Suspect]
     Active Substance: RANITIDINE
     Dosage: 50 MG, BID
     Route: 048
     Dates: start: 20191018
  20. RANITIDINE [Suspect]
     Active Substance: RANITIDINE
     Dosage: UNK
     Route: 065
  21. AFINITOR [Suspect]
     Active Substance: EVEROLIMUS
     Indication: Product used for unknown indication
     Dosage: 2.5 MILLIGRAM (5 MG MONDAY TO SATURDAY AND 2.5 MG SUNDAY)
     Route: 048
     Dates: start: 20190717
  22. AFINITOR [Suspect]
     Active Substance: EVEROLIMUS
     Dosage: 5 MG MONDAY/WEDNESDAY/FRIDAY AND 2.5 MG
     Dates: start: 20191001, end: 20191014
  23. AFINITOR [Suspect]
     Active Substance: EVEROLIMUS
     Dosage: 2.5 MG, ON TUESDAY, THURSDAY, SATURDAY AND SUNDAY
     Route: 048
     Dates: start: 20190718, end: 20200207
  24. AFINITOR [Suspect]
     Active Substance: EVEROLIMUS
     Dosage: 5 MG MONDAY/WEDNESDAY/FRIDAY AND 2.5 MG TUESDAY/THURSDAY/SATURDAY/SUNDAY
     Route: 048
     Dates: start: 20200212
  25. AFINITOR [Suspect]
     Active Substance: EVEROLIMUS
     Dosage: 5 MG MONDAY/WEDNESDAY/FRIDAY AND 2.5 MG TUESDAY/THURSDAY/SATURDAY/SUNDAY
     Route: 048
     Dates: start: 20200213
  26. AFINITOR [Suspect]
     Active Substance: EVEROLIMUS
     Dosage: 5 MG MONDAY/WEDNESDAY/FRIDAY AND 2.5 MG TUESDAY/THURSDAY/SATURDAY/SUNDAY
     Route: 048
  27. AFINITOR [Suspect]
     Active Substance: EVEROLIMUS
     Dosage: 5 MG MONDAY/WEDNESDAY/FRIDAY AND 2.5 MG TUESDAY/THURSDAY/SATURDAY/SUNDAY
     Route: 048
     Dates: start: 20190717, end: 20200207
  28. COTRIMOXAZOLE [Concomitant]
     Active Substance: SULFAMETHOXAZOLE\TRIMETHOPRIM
     Indication: Product used for unknown indication
     Dosage: 360 MG, BID (7.5 ML) ON SATURDAYS AND SUNDAYS
     Route: 048
  29. COTRIMOXAZOLE [Concomitant]
     Active Substance: SULFAMETHOXAZOLE\TRIMETHOPRIM
     Dosage: 4 MILLIGRAM, BID(VARIABLE; 4MG BD WEANED TO 0.5MGUNK
     Dates: start: 20191101, end: 20200221
  30. COTRIMOXAZOLE [Concomitant]
     Active Substance: SULFAMETHOXAZOLE\TRIMETHOPRIM
     Dosage: UNK
     Route: 065
  31. COTRIMOXAZOLE [Concomitant]
     Active Substance: SULFAMETHOXAZOLE\TRIMETHOPRIM
     Dosage: 720 MILLIGRAM, QD (360 MG, BID (7.5 ML) ON SATURDAYS
     Route: 048
  32. COTRIMOXAZOLE [Concomitant]
     Active Substance: SULFAMETHOXAZOLE\TRIMETHOPRIM
     Dosage: UNK
     Route: 065
  33. COTRIMOXAZOLE [Concomitant]
     Active Substance: SULFAMETHOXAZOLE\TRIMETHOPRIM
     Dosage: 360 MG BD ON SAT/SUN ONLY
     Route: 065
  34. LANSOPRAZOLE [Concomitant]
     Active Substance: LANSOPRAZOLE
     Indication: Product used for unknown indication
     Dosage: UNK
     Route: 065
  35. LOPERAMIDE [Concomitant]
     Active Substance: LOPERAMIDE
     Indication: Prophylaxis
     Dosage: 2 MG, 1 CAPSULE UP TO 4 TIMES A DAY
     Route: 065
  36. ACETAMINOPHEN [Concomitant]
     Active Substance: ACETAMINOPHEN
     Indication: Product used for unknown indication
     Dosage: UNK, PRN
     Route: 048

REACTIONS (29)
  - Facial paralysis [Recovered/Resolved]
  - Ataxia [Recovered/Resolved]
  - Ataxia [Not Recovered/Not Resolved]
  - Facial paralysis [Recovered/Resolved]
  - Hemiparesis [Recovered/Resolved]
  - Hypertension [Recovered/Resolved]
  - Brain stem glioma [Unknown]
  - Malignant neoplasm progression [Unknown]
  - Electrocardiogram QT prolonged [Recovered/Resolved]
  - Lymphocyte count decreased [Not Recovered/Not Resolved]
  - Abdominal distension [Recovered/Resolved]
  - Alanine aminotransferase increased [Recovered/Resolved]
  - Blood creatinine increased [Recovered/Resolved]
  - Blood creatinine increased [Unknown]
  - Blood cholesterol increased [Recovered/Resolved]
  - Blood triglycerides increased [Unknown]
  - Flatulence [Recovered/Resolved]
  - Blood cholesterol increased [Not Recovered/Not Resolved]
  - Hypophosphataemia [Recovered/Resolved]
  - Myoclonus [Recovered/Resolved]
  - Neutrophil count decreased [Recovered/Resolved]
  - Neutrophil count decreased [Recovered/Resolved]
  - Mucosal inflammation [Recovered/Resolved]
  - Hypophagia [Not Recovered/Not Resolved]
  - Ocular hyperaemia [Recovered/Resolved]
  - Gastrooesophageal reflux disease [Recovered/Resolved]
  - Disease progression [Unknown]
  - Mucosal inflammation [Recovered/Resolved]
  - White blood cell count decreased [Not Recovered/Not Resolved]

NARRATIVE: CASE EVENT DATE: 20190111
